FAERS Safety Report 4365614-6 (Version None)
Quarter: 2004Q2

REPORT INFORMATION
  Report Type: 
  Country: None (occurrence: None)
  Receive Date: 20040526
  Receipt Date: 20040526
  Transmission Date: 20050107
  Serious: Yes (Hospitalization)
  Sender: FDA-Public Use
  Company Number: None

PATIENT
  Age: 46 Year
  Sex: Male
  Weight: 76 kg

DRUGS (1)
  1. LISINOPRIL [Suspect]
     Indication: ANGIONEUROTIC OEDEMA
     Dosage: 5 MG Q HS

REACTIONS (1)
  - ANGIONEUROTIC OEDEMA [None]
